FAERS Safety Report 5296718-1 (Version None)
Quarter: 2007Q2

REPORT INFORMATION
  Report Type: 
  Country: None (occurrence: None)
  Receive Date: 20070413
  Receipt Date: 20070403
  Transmission Date: 20071010
  Serious: Yes (Death)
  Sender: FDA-Public Use
  Company Number: JP-PFIZER INC-2007026422

PATIENT
  Age: 21 Year
  Sex: Male

DRUGS (4)
  1. GABAPEN [Suspect]
     Indication: EPILEPSY
     Dosage: DAILY DOSE:1200MG
     Route: 048
  2. TEGRETOL [Concomitant]
     Route: 048
  3. EXCEGRAN [Concomitant]
     Route: 048
  4. VOLTAREN [Concomitant]
     Route: 048

REACTIONS (1)
  - SUDDEN DEATH [None]
